FAERS Safety Report 16513595 (Version 1)
Quarter: 2019Q3

REPORT INFORMATION
  Report Type: Spontaneous
  Country: JP (occurrence: JP)
  Receive Date: 20190701
  Receipt Date: 20190701
  Transmission Date: 20191004
  Serious: Yes (Life-Threatening, Hospitalization)
  Sender: FDA-Public Use
  Company Number: PHHY2019JP150225

PATIENT
  Age: 26 Year
  Sex: Male

DRUGS (3)
  1. ESCITALOPRAM [Interacting]
     Active Substance: ESCITALOPRAM OXALATE
     Indication: MAJOR DEPRESSION
     Dosage: 20 MG, QD
     Route: 065
  2. CLOMIPRAMINE [Suspect]
     Active Substance: CLOMIPRAMINE
     Indication: MAJOR DEPRESSION
     Dosage: 50 MG, QD
     Route: 065
  3. FLUNITRAZEPAM [Concomitant]
     Active Substance: FLUNITRAZEPAM
     Indication: MAJOR DEPRESSION
     Dosage: 2 MG, QD
     Route: 065

REACTIONS (11)
  - Hyperhidrosis [Recovering/Resolving]
  - Serotonin syndrome [Recovering/Resolving]
  - Muscular weakness [Recovering/Resolving]
  - Hyperreflexia [Recovering/Resolving]
  - Disorientation [Recovering/Resolving]
  - Discomfort [Recovering/Resolving]
  - Muscle rigidity [Recovering/Resolving]
  - Myoclonus [Recovering/Resolving]
  - Agitation [Recovering/Resolving]
  - Tremor [Recovering/Resolving]
  - Alcohol interaction [Unknown]
